FAERS Safety Report 8223716-8 (Version None)
Quarter: 2012Q1

REPORT INFORMATION
  Report Type: 
  Country: None (occurrence: None)
  Receive Date: 20120321
  Receipt Date: 20120314
  Transmission Date: 20120608
  Serious: Yes (Other)
  Sender: FDA-Public Use
  Company Number: BE-AMGEN-BELSP2012007908

PATIENT
  Age: 57 Year
  Sex: Female
  Weight: 60 kg

DRUGS (7)
  1. ARCOXIA [Concomitant]
     Dosage: 60 MG, UNK
     Dates: start: 20100825, end: 20110811
  2. SOTALOL HCL [Concomitant]
     Dosage: 80 MG, QD
  3. ASPIRIN [Concomitant]
     Dosage: 80 MG, QD
  4. CALCIUM CARBONATE [Concomitant]
     Dosage: 500 MG, UNK
  5. PROLIA [Suspect]
     Indication: PRODUCT USED FOR UNKNOWN INDICATION
     Dosage: 60 MG, Q6MO
     Route: 058
     Dates: start: 20110808
  6. NOLVADEX                           /00388701/ [Concomitant]
     Dosage: 20 MG, QD
     Route: 048
  7. VITAMIN D [Concomitant]
     Dosage: UNK
     Dates: start: 20040101

REACTIONS (3)
  - FOOT FRACTURE [None]
  - RIB FRACTURE [None]
  - COUGH [None]
